FAERS Safety Report 5193012-4 (Version None)
Quarter: 2006Q4

REPORT INFORMATION
  Report Type: 
  Country: None (occurrence: None)
  Receive Date: 20061228
  Receipt Date: 20060221
  Transmission Date: 20070319
  Serious: No
  Sender: FDA-Public Use
  Company Number: US-GLAXOSMITHKLINE-A0594632A

PATIENT
  Age: 81 Year
  Sex: Male

DRUGS (2)
  1. AVODART [Suspect]
     Indication: BENIGN PROSTATIC HYPERPLASIA
     Dosage: .5U PER DAY
     Route: 048
     Dates: start: 20060207
  2. MICARDIS [Concomitant]

REACTIONS (4)
  - ABDOMINAL PAIN UPPER [None]
  - AXILLARY PAIN [None]
  - BREAST ENLARGEMENT [None]
  - SKIN LACERATION [None]
